FAERS Safety Report 13680143 (Version 2)
Quarter: 2017Q3

REPORT INFORMATION
  Report Type: Spontaneous
  Country: FR (occurrence: FR)
  Receive Date: 20170622
  Receipt Date: 20170706
  Transmission Date: 20171127
  Serious: Yes (Death, Hospitalization)
  Sender: FDA-Public Use
  Company Number: FR-ALLERGAN-1726201US

PATIENT
  Age: 66 Year
  Sex: Male

DRUGS (3)
  1. TRIPTORELIN PAMOATE - BP [Suspect]
     Active Substance: TRIPTORELIN PAMOATE
     Indication: PROSTATE CANCER METASTATIC
     Dosage: 22.5 MG, UNK
     Route: 065
     Dates: start: 20140820
  2. PREDNISONE. [Concomitant]
     Active Substance: PREDNISONE
     Indication: PRODUCT USED FOR UNKNOWN INDICATION
     Dosage: 5 MG, UNK
     Route: 065
     Dates: start: 20140829, end: 20150131
  3. ZYTIGA [Suspect]
     Active Substance: ABIRATERONE ACETATE
     Indication: PROSTATE CANCER METASTATIC
     Dosage: 4 MG, QD
     Route: 048
     Dates: start: 20140829, end: 20150131

REACTIONS (1)
  - Aortic dissection rupture [Fatal]

NARRATIVE: CASE EVENT DATE: 20150201
